FAERS Safety Report 9278524 (Version 1)
Quarter: 2013Q2

REPORT INFORMATION
  Report Type: Spontaneous
  Country: US (occurrence: US)
  Receive Date: 20130508
  Receipt Date: 20130508
  Transmission Date: 20140414
  Serious: No
  Sender: FDA-Public Use
  Company Number: US-BAUSCH-2012BL002157

PATIENT
  Age: 19 Year
  Sex: Male

DRUGS (2)
  1. OFLOXACIN OTIC SOLUTION 0.3% [Suspect]
     Indication: CONJUNCTIVITIS
     Route: 047
     Dates: start: 20120326, end: 20120326
  2. OFLOXACIN OTIC [Suspect]
     Indication: OFF LABEL USE

REACTIONS (2)
  - Wrong drug administered [Unknown]
  - Conjunctivitis [Not Recovered/Not Resolved]
